FAERS Safety Report 9050477 (Version 2)
Quarter: 2013Q3

REPORT INFORMATION
  Report Type: Spontaneous
  Country: IT (occurrence: IT)
  Receive Date: 20130205
  Receipt Date: 20130813
  Transmission Date: 20140515
  Serious: Yes (Other)
  Sender: FDA-Public Use
  Company Number: PHHY2013IT009284

PATIENT
  Sex: Female

DRUGS (2)
  1. ZOMETA [Suspect]
     Indication: METASTASES TO BONE
     Dosage: 4 MG, MONTHLY
     Route: 042
     Dates: start: 20110301, end: 20111101
  2. ALENDRONIC ACID [Suspect]
     Indication: METASTASES TO BONE
     Dosage: 70 MG,WEEKLY
     Route: 048
     Dates: start: 20100601, end: 20110301

REACTIONS (1)
  - Osteonecrosis of jaw [Recovering/Resolving]
